FAERS Safety Report 8400923-2 (Version None)
Quarter: 2012Q2

REPORT INFORMATION
  Report Type: 
  Country: None (occurrence: None)
  Receive Date: 20120601
  Receipt Date: 20120522
  Transmission Date: 20120825
  Serious: Yes (Hospitalization)
  Sender: FDA-Public Use
  Company Number: FR-BRISTOL-MYERS SQUIBB COMPANY-16618530

PATIENT
  Age: 45 Year
  Sex: Female

DRUGS (2)
  1. AVASTIN [Suspect]
     Indication: BREAST CANCER METASTATIC
     Dosage: 2ND:16APR2012 1 DF:25MG/ML 10MG/KG(520MG) ROUTE:PERCUTANEOUS IMPLANTABLE CHAMBER
     Route: 042
  2. TAXOL [Suspect]
     Indication: BREAST CANCER METASTATIC
     Dosage: 2ND COURSE ON 16APR2012
     Route: 042

REACTIONS (1)
  - NASAL SEPTUM PERFORATION [None]
